FAERS Safety Report 14267883 (Version 1)
Quarter: 2017Q4

REPORT INFORMATION
  Report Type: Spontaneous
  Country: US (occurrence: US)
  Receive Date: 20171211
  Receipt Date: 20171211
  Transmission Date: 20180321
  Serious: No
  Sender: FDA-Public Use
  Company Number: US-ROCHE-1920295

PATIENT
  Age: 57 Year
  Sex: Female

DRUGS (1)
  1. LUCENTIS [Suspect]
     Active Substance: RANIBIZUMAB
     Indication: DIABETIC RETINAL OEDEMA
     Dosage: FIRST DOSE
     Route: 050
     Dates: start: 20170411

REACTIONS (2)
  - Medication error [Unknown]
  - Expired product administered [Unknown]

NARRATIVE: CASE EVENT DATE: 20170411
